FAERS Safety Report 5914437-2 (Version None)
Quarter: 2008Q4

REPORT INFORMATION
  Report Type: 
  Country: None (occurrence: None)
  Receive Date: 20081009
  Receipt Date: 20080929
  Transmission Date: 20090506
  Serious: Yes (Other)
  Sender: FDA-Public Use
  Company Number: DE-GILEAD-2008-0018427

PATIENT
  Sex: Female
  Weight: 78.4 kg

DRUGS (7)
  1. TRUVADA [Suspect]
     Indication: HIV INFECTION
     Route: 048
     Dates: start: 20060726
  2. ZIDOVUDINE [Concomitant]
     Indication: HIV INFECTION
     Dates: start: 20060726
  3. ZIDOVUDINE [Concomitant]
     Indication: PROPHYLAXIS AGAINST HIV INFECTION
     Dates: start: 20070306, end: 20070306
  4. LOPINAVIR AND RITONAVIR [Concomitant]
     Indication: HIV INFECTION
     Dates: start: 20070123
  5. SUCRALFATE [Concomitant]
     Indication: DYSPEPSIA
     Dates: start: 20061030, end: 20061115
  6. VOLTAREN [Concomitant]
     Dates: start: 20061129, end: 20061201
  7. LOPERAMIDE [Concomitant]
     Indication: DIARRHOEA
     Dates: start: 20070124

REACTIONS (2)
  - PREGNANCY [None]
  - URINARY TRACT INFECTION [None]
